FAERS Safety Report 14518276 (Version 2)
Quarter: 2018Q1

REPORT INFORMATION
  Report Type: Report from Study
  Country: CO (occurrence: CO)
  Receive Date: 20180212
  Receipt Date: 20180321
  Transmission Date: 20180509
  Serious: Yes (Death, Hospitalization, Other)
  Sender: FDA-Public Use
  Company Number: CO-JNJFOC-20180209168

PATIENT
  Age: 64 Year
  Sex: Male
  Weight: 82 kg

DRUGS (1)
  1. SIMPONI [Suspect]
     Active Substance: GOLIMUMAB
     Indication: RHEUMATOID ARTHRITIS
     Route: 058
     Dates: start: 20151127, end: 20171125

REACTIONS (3)
  - Pneumonia [Recovering/Resolving]
  - Bacterial infection [Fatal]
  - Diabetic coma [Recovering/Resolving]

NARRATIVE: CASE EVENT DATE: 2018
